FAERS Safety Report 11948982 (Version 1)
Quarter: 2016Q1

REPORT INFORMATION
  Report Type: Report from Study
  Country: US (occurrence: US)
  Receive Date: 20160125
  Receipt Date: 20160125
  Transmission Date: 20160526
  Serious: No
  Sender: FDA-Public Use
  Company Number: US-ABBVIE-15K-163-1333883-00

PATIENT
  Age: 51 Year
  Sex: Female

DRUGS (1)
  1. HUMIRA [Suspect]
     Active Substance: ADALIMUMAB
     Indication: CROHN^S DISEASE
     Route: 065
     Dates: start: 20141203

REACTIONS (9)
  - Headache [Recovered/Resolved]
  - Impaired healing [Unknown]
  - Mobility decreased [Unknown]
  - Palpitations [Not Recovered/Not Resolved]
  - Contusion [Not Recovered/Not Resolved]
  - Thyroid disorder [Not Recovered/Not Resolved]
  - Drug effect incomplete [Unknown]
  - Weight gain poor [Unknown]
  - Asthenia [Unknown]

NARRATIVE: CASE EVENT DATE: 20141205
